FAERS Safety Report 5097616-9 (Version None)
Quarter: 2006Q3

REPORT INFORMATION
  Report Type: 
  Country: None (occurrence: None)
  Receive Date: 20060901
  Receipt Date: 20060825
  Transmission Date: 20061208
  Serious: Yes (Disabling, Other)
  Sender: FDA-Public Use
  Company Number: HQWYE971025AUG06

PATIENT
  Age: 52 Year
  Sex: Female

DRUGS (29)
  1. INDERAL [Suspect]
     Indication: HYPERTENSION
     Dosage: 30 MG 1X PER 1 DAY
     Dates: start: 19970601, end: 20041001
  2. INDERAL [Suspect]
     Indication: TACHYCARDIA
     Dosage: 30 MG 1X PER 1 DAY
     Dates: start: 19970601, end: 20041001
  3. ASPIRIN [Concomitant]
  4. ALLOPURINOL [Concomitant]
  5. ALPRAZOLAM [Concomitant]
  6. BELLADONNA (BELLADONNA EXTRACT) [Concomitant]
  7. BEZAFIBRATE [Concomitant]
  8. BISOPROLOL FUMARATE [Concomitant]
  9. BROMAZEPAM [Concomitant]
  10. BUDESONIDE [Concomitant]
  11. CANDESARTAN [Concomitant]
  12. CELECOXIB [Concomitant]
  13. CERIVASTATIN [Concomitant]
  14. CHLOROQUINE [Concomitant]
  15. CLOMIPRAMINE HCL [Concomitant]
  16. CLOPIDOGREL [Concomitant]
  17. CHOLESTYRAMINE RESIN (COLESTYRAMINE) [Concomitant]
  18. CORTICOSTEROID NOS [Concomitant]
  19. DIOSMIN [Concomitant]
  20. ESCITALOPRAM [Concomitant]
  21. ENALAPRIL [Concomitant]
  22. FLUPENTIXOL [Concomitant]
  23. LANSOPRAZOLE [Concomitant]
  24. PAROXETINE HCL [Concomitant]
  25. PRAVASTATIN [Concomitant]
  26. CRESTOR [Concomitant]
  27. SIMVASTATIN [Concomitant]
  28. SPIRIVA [Concomitant]
  29. TRAMADOL HCL [Concomitant]

REACTIONS (1)
  - MITOCHONDRIAL MYOPATHY [None]
